FAERS Safety Report 6158881-X (Version None)
Quarter: 2009Q2

REPORT INFORMATION
  Report Type: 
  Country: None (occurrence: None)
  Receive Date: 20090415
  Receipt Date: 20090415
  Transmission Date: 20091009
  Serious: Yes (Hospitalization, Disabling)
  Sender: FDA-Public Use
  Company Number: None

PATIENT
  Age: 9 Year
  Sex: Male
  Weight: 34 kg

DRUGS (7)
  1. IFOSFAMIDE INJECTION 3G/60ML TEVA [Suspect]
     Indication: ACUTE LYMPHOCYTIC LEUKAEMIA
     Dosage: 2180 MG Q 20 H INJ
     Route: 058
     Dates: start: 20090403, end: 20090407
  2. IFOSFAMIDE INJECTION 3G/60ML TEVA [Suspect]
     Indication: LEUKAEMIA RECURRENT
     Dosage: 2180 MG Q 20 H INJ
     Dates: start: 20090403, end: 20090407
  3. MESNA [Concomitant]
  4. OMEPRAZOLE [Concomitant]
  5. ONDANSETRON [Concomitant]
  6. SIMVASTATIN [Concomitant]
  7. SUCRALFATE [Concomitant]

REACTIONS (6)
  - ABNORMAL BEHAVIOUR [None]
  - BRADYPHRENIA [None]
  - CONDITION AGGRAVATED [None]
  - GAIT DISTURBANCE [None]
  - NEUROTOXICITY [None]
  - SPEECH DISORDER [None]
